FAERS Safety Report 6633665-4 (Version None)
Quarter: 2010Q1

REPORT INFORMATION
  Report Type: 
  Country: None (occurrence: None)
  Receive Date: 20100312
  Receipt Date: 20100305
  Transmission Date: 20100710
  Serious: Yes (Death)
  Sender: FDA-Public Use
  Company Number: CA-AMGEN-QUU397762

PATIENT
  Sex: Female
  Weight: 70 kg

DRUGS (5)
  1. ENBREL [Suspect]
     Indication: RHEUMATOID ARTHRITIS
     Route: 058
     Dates: start: 20081101, end: 20100224
  2. ARAVA [Concomitant]
     Dates: start: 20070101, end: 20100224
  3. CALCIUM [Concomitant]
     Dates: start: 20050101, end: 20100101
  4. VITAMIN D [Concomitant]
     Dates: start: 20050101, end: 20100101
  5. ACTONEL [Concomitant]
     Dates: start: 20050101, end: 20100101

REACTIONS (1)
  - CEREBROVASCULAR ACCIDENT [None]
